FAERS Safety Report 22209940 (Version 2)
Quarter: 2023Q2

REPORT INFORMATION
  Report Type: Spontaneous
  Country: US (occurrence: US)
  Receive Date: 20230414
  Receipt Date: 20230426
  Transmission Date: 20230721
  Serious: Yes (Hospitalization, Other)
  Sender: FDA-Public Use
  Company Number: US-SEATTLE GENETICS-2023SGN03761

PATIENT
  Age: 47 Year
  Sex: Female
  Weight: 72.5 kg

DRUGS (1)
  1. ADCETRIS [Suspect]
     Active Substance: BRENTUXIMAB VEDOTIN
     Indication: Hodgkin^s disease
     Dosage: 1.802 MG/KG (135 MG)
     Route: 065
     Dates: start: 2023

REACTIONS (3)
  - Diabetic ketoacidosis [Recovered/Resolved]
  - Cytokine release syndrome [Unknown]
  - Insulin resistance [Recovered/Resolved]
